FAERS Safety Report 8408430-8 (Version None)
Quarter: 2012Q2

REPORT INFORMATION
  Report Type: 
  Country: None (occurrence: None)
  Receive Date: 20120604
  Receipt Date: 20120525
  Transmission Date: 20120825
  Serious: Yes (Death, Hospitalization, Other)
  Sender: FDA-Public Use
  Company Number: US-VERTEX PHARMACEUTICALS INC.-AE-2012-007836

PATIENT
  Age: 62 Year
  Sex: Male

DRUGS (3)
  1. INCIVEK [Suspect]
     Indication: HEPATITIS C
     Dates: start: 20120125
  2. RIBAVIRIN [Concomitant]
  3. PEGASYS [Concomitant]

REACTIONS (8)
  - STAPHYLOCOCCAL SEPSIS [None]
  - LUNG INFILTRATION [None]
  - LACERATION [None]
  - CONVULSION [None]
  - RESPIRATORY FAILURE [None]
  - HYPOXIA [None]
  - ASCITES [None]
  - RENAL FAILURE ACUTE [None]
